FAERS Safety Report 21662700 (Version 7)
Quarter: 2023Q2

REPORT INFORMATION
  Report Type: Report from Study
  Country: US (occurrence: US)
  Receive Date: 20221130
  Receipt Date: 20230505
  Transmission Date: 20230721
  Serious: Yes (Hospitalization, Other)
  Sender: FDA-Public Use
  Company Number: US-ABBVIE-4217374

PATIENT
  Age: 69 Year
  Sex: Female
  Weight: 63.502 kg

DRUGS (8)
  1. HUMIRA [Suspect]
     Active Substance: ADALIMUMAB
     Indication: Rheumatoid arthritis
     Dosage: CITRATE FREE
     Route: 058
  2. HUMIRA [Suspect]
     Active Substance: ADALIMUMAB
     Dosage: CITRATE FREE
     Route: 058
     Dates: start: 2022
  3. RINVOQ [Suspect]
     Active Substance: UPADACITINIB
     Indication: Rheumatoid arthritis
     Dosage: FORM STRENGTH  15MG
     Route: 048
  4. RINVOQ [Suspect]
     Active Substance: UPADACITINIB
     Indication: Rheumatoid arthritis
     Dosage: FORM STRENGTH  15MG
     Route: 048
     Dates: start: 20220101, end: 202211
  5. RINVOQ [Suspect]
     Active Substance: UPADACITINIB
     Indication: Rheumatoid arthritis
     Route: 048
  6. METHOTREXATE [Concomitant]
     Active Substance: METHOTREXATE
     Indication: Product used for unknown indication
  7. MODERNA COVID-19 VACCINE [Concomitant]
     Active Substance: ELASOMERAN
     Indication: COVID-19 immunisation
     Route: 030
  8. CORTISONE [Concomitant]
     Active Substance: CORTISONE
     Indication: Product used for unknown indication

REACTIONS (11)
  - Oral surgery [Recovered/Resolved]
  - Arthralgia [Recovered/Resolved]
  - Hospitalisation [Recovering/Resolving]
  - Haemoglobin decreased [Recovered/Resolved]
  - Drug ineffective [Not Recovered/Not Resolved]
  - Transfusion [Unknown]
  - Dental care [Unknown]
  - Medical device implantation [Unknown]
  - Arthralgia [Not Recovered/Not Resolved]
  - Full blood count abnormal [Unknown]
  - Drainage [Recovering/Resolving]

NARRATIVE: CASE EVENT DATE: 20220101
